FAERS Safety Report 5224208-0 (Version None)
Quarter: 2007Q1

REPORT INFORMATION
  Report Type: 
  Country: None (occurrence: None)
  Receive Date: 20070130
  Receipt Date: 20070117
  Transmission Date: 20070707
  Serious: Yes (Hospitalization)
  Sender: FDA-Public Use
  Company Number: GB-ELI_LILLY_AND_COMPANY-GB200701003303

PATIENT
  Age: 68 Year
  Sex: Female

DRUGS (9)
  1. FORTEO [Suspect]
     Indication: OSTEOPOROSIS
     Dosage: 20 UG, UNK
     Dates: start: 20050901
  2. OMEPRAZOLE [Concomitant]
     Dosage: 20 MG, UNK
  3. CO-AMILOFRUSE [Concomitant]
  4. ADCAL-D3 [Concomitant]
     Dosage: 1 D/F, 2/D
  5. ATENOLOL [Concomitant]
     Dosage: 100 MG, UNK
  6. CO-DYDRAMOL [Concomitant]
  7. OLANZAPINE [Concomitant]
     Dosage: 7.5 MG, DAILY (1/D)
     Route: 048
  8. VENLAFAXINE HCL [Concomitant]
     Dosage: 375 MG, UNK
  9. ARTHROTEC                               /UNK/ [Concomitant]

REACTIONS (1)
  - HIP FRACTURE [None]
